FAERS Safety Report 8426728-4 (Version None)
Quarter: 2012Q2

REPORT INFORMATION
  Report Type: 
  Country: None (occurrence: None)
  Receive Date: 20120611
  Receipt Date: 20120604
  Transmission Date: 20120825
  Serious: Yes (Death, Hospitalization)
  Sender: FDA-Public Use
  Company Number: FR-VERTEX PHARMACEUTICALS INC.-AE-2011-000236

PATIENT
  Sex: Male
  Weight: 78 kg

DRUGS (11)
  1. LEVOTHYROXINE SODIUM [Concomitant]
     Indication: HYPOTHYROIDISM
     Route: 065
  2. PEGINTERFERON ALFA-2A [Concomitant]
     Indication: HEPATITIS C
     Route: 058
     Dates: start: 20110422, end: 20110515
  3. DURAGESIC-100 [Concomitant]
     Indication: PAIN
     Dates: start: 20110422, end: 20110515
  4. DIAMICRON [Concomitant]
     Indication: DIABETES MELLITUS
     Route: 048
  5. TEMAZEPAM [Concomitant]
  6. DICETEL [Concomitant]
  7. ACETAMINOPHEN [Concomitant]
  8. RIBAVIRIN [Concomitant]
     Indication: HEPATITIS C
     Route: 048
     Dates: start: 20110422, end: 20110515
  9. ALUMINUM HYDROXIDE AND MAGNESIUM TRISILICATE [Concomitant]
  10. VX-950 [Suspect]
     Indication: HEPATITIS C
     Route: 048
     Dates: start: 20110422, end: 20110515
  11. METFORMIN HCL [Concomitant]
     Indication: DIABETES MELLITUS
     Route: 048

REACTIONS (1)
  - SEPTIC SHOCK [None]
